FAERS Safety Report 16882346 (Version 1)
Quarter: 2019Q4

REPORT INFORMATION
  Report Type: Report from Study
  Country: IT (occurrence: ES)
  Receive Date: 20191003
  Receipt Date: 20191003
  Transmission Date: 20200122
  Serious: Yes (Other)
  Sender: FDA-Public Use
  Company Number: IT-EISAI MEDICAL RESEARCH-EC-2019-063024

PATIENT
  Age: 87 Year
  Sex: Female

DRUGS (2)
  1. DONEPEZIL. [Suspect]
     Active Substance: DONEPEZIL
     Indication: PRODUCT USED FOR UNKNOWN INDICATION
     Route: 048
     Dates: start: 20190101, end: 20190817
  2. DONEPEZIL. [Suspect]
     Active Substance: DONEPEZIL
     Dosage: UNKNOWN REDUCED DOSE
     Route: 048
     Dates: start: 20190818

REACTIONS (1)
  - Syncope [Recovering/Resolving]

NARRATIVE: CASE EVENT DATE: 20190818
